FAERS Safety Report 10006882 (Version 2)
Quarter: 2014Q1

REPORT INFORMATION
  Report Type: Spontaneous
  Country: US (occurrence: US)
  Receive Date: 20140313
  Receipt Date: 20140313
  Transmission Date: 20141002
  Serious: No
  Sender: FDA-Public Use
  Company Number: US-GILEAD-2012-0065247

PATIENT
  Age: 73 Year
  Sex: Female

DRUGS (4)
  1. LETAIRIS [Suspect]
     Indication: SYSTEMIC SCLEROSIS
     Dosage: 5 MG, QD
     Route: 048
     Dates: start: 20121105
  2. LETAIRIS [Suspect]
     Indication: SCLERODERMA
  3. LETAIRIS [Suspect]
     Indication: PULMONARY ARTERIAL HYPERTENSION
  4. TADALAFIL [Concomitant]
     Dosage: UNK
     Dates: end: 20121104

REACTIONS (2)
  - Dyspnoea [Unknown]
  - Nasal congestion [Unknown]
